FAERS Safety Report 21714462 (Version 1)
Quarter: 2022Q4

REPORT INFORMATION
  Report Type: Spontaneous
  Country: HR (occurrence: HR)
  Receive Date: 20221212
  Receipt Date: 20221212
  Transmission Date: 20230113
  Serious: Yes (Other)
  Sender: FDA-Public Use
  Company Number: HR-STRIDES ARCOLAB LIMITED-2022SP016533

PATIENT
  Age: 38 Year
  Sex: Female

DRUGS (2)
  1. MYCOPHENOLATE MOFETIL [Suspect]
     Active Substance: MYCOPHENOLATE MOFETIL
     Indication: Renal transplant
     Dosage: UNK
     Route: 065
  2. TACROLIMUS [Suspect]
     Active Substance: TACROLIMUS
     Indication: Renal transplant
     Dosage: UNK
     Route: 065

REACTIONS (6)
  - Chronic allograft nephropathy [Unknown]
  - Renal injury [Unknown]
  - Transplant rejection [Unknown]
  - Cytomegalovirus infection reactivation [Unknown]
  - COVID-19 pneumonia [Recovered/Resolved]
  - Genital herpes [Unknown]
